FAERS Safety Report 19032396 (Version 1)
Quarter: 2021Q1

REPORT INFORMATION
  Report Type: Report from Study
  Country: None (occurrence: US)
  Receive Date: 20210319
  Receipt Date: 20210319
  Transmission Date: 20210420
  Serious: Yes (Hospitalization, Other)
  Sender: FDA-Public Use
  Company Number: US-ABBVIE-20K-163-3616307-00

PATIENT
  Sex: Male
  Weight: 90.8 kg

DRUGS (6)
  1. CLOPIDOGREL [Concomitant]
     Active Substance: CLOPIDOGREL BISULFATE
     Indication: HYPERTENSION
  2. METOPROLOL. [Concomitant]
     Active Substance: METOPROLOL
     Indication: HYPERTENSION
  3. ROSUVASTATIN. [Concomitant]
     Active Substance: ROSUVASTATIN
     Indication: BLOOD CHOLESTEROL INCREASED
  4. LOSARTAN. [Concomitant]
     Active Substance: LOSARTAN
     Indication: HYPERTENSION
  5. ZYRTEC [Concomitant]
     Active Substance: CETIRIZINE HYDROCHLORIDE
     Indication: HYPERSENSITIVITY
  6. HUMIRA [Suspect]
     Active Substance: ADALIMUMAB
     Indication: PSORIASIS
     Route: 058
     Dates: start: 2006

REACTIONS (6)
  - Spinal fusion acquired [Recovered/Resolved]
  - Spondylolisthesis [Recovered/Resolved]
  - Back pain [Recovered/Resolved]
  - Psoriasis [Not Recovered/Not Resolved]
  - Coronary artery occlusion [Recovered/Resolved]
  - Myocardial infarction [Recovered/Resolved]

NARRATIVE: CASE EVENT DATE: 2015
